FAERS Safety Report 7683341-4 (Version None)
Quarter: 2011Q3

REPORT INFORMATION
  Report Type: 
  Country: None (occurrence: None)
  Receive Date: 20110815
  Receipt Date: 20110810
  Transmission Date: 20111222
  Serious: Yes (Hospitalization)
  Sender: FDA-Public Use
  Company Number: US-BAYER-200924331NA

PATIENT
  Age: 76 Year
  Sex: Female
  Weight: 74.2 kg

DRUGS (26)
  1. SORAFENIB (RAF KINASE INHIBITOR) [Suspect]
     Route: 048
     Dates: start: 20090614, end: 20090614
  2. COUMADIN [Concomitant]
     Dosage: 1 AS DIRECTED
  3. OMEPRAZOLE [Concomitant]
     Indication: GASTROOESOPHAGEAL REFLUX DISEASE
     Route: 048
     Dates: start: 19980213
  4. DIGOXIN [Concomitant]
     Indication: ATRIAL FIBRILLATION
     Route: 048
     Dates: start: 20090611
  5. SORAFENIB (RAF KINASE INHIBITOR) [Suspect]
     Route: 048
     Dates: start: 20090522, end: 20090613
  6. SORAFENIB (RAF KINASE INHIBITOR) [Suspect]
     Route: 048
     Dates: start: 20090626, end: 20090805
  7. COUMADIN [Concomitant]
     Dosage: 4 MG (DAILY DOSE), , ORAL
     Route: 048
     Dates: start: 20090805
  8. SORAFENIB (RAF KINASE INHIBITOR) [Suspect]
     Route: 048
     Dates: start: 20090617, end: 20090617
  9. DILTIAZEM [Concomitant]
     Route: 048
     Dates: start: 20090614
  10. MAXZIDE [Concomitant]
     Indication: HYPERTENSION
     Dosage: 25
     Route: 048
     Dates: start: 20020607
  11. MAGNESIUM OXIDE [Concomitant]
     Indication: HYPOMAGNESAEMIA
     Route: 048
     Dates: start: 20090625
  12. PAXIL [Concomitant]
     Indication: DEPRESSION
     Route: 048
     Dates: start: 19990604
  13. FOLBIC [Concomitant]
     Route: 048
     Dates: start: 19990427
  14. PHENERGAN HCL [Concomitant]
  15. LASIX [Concomitant]
     Indication: OEDEMA PERIPHERAL
     Route: 048
     Dates: start: 20040715
  16. SORAFENIB (RAF KINASE INHIBITOR) [Suspect]
     Route: 048
     Dates: start: 20090615, end: 20090616
  17. MICARDIS [Concomitant]
     Indication: HYPERTENSION
     Route: 048
     Dates: start: 20040112
  18. SYNTHROID [Concomitant]
     Indication: HYPOTHYROIDISM
     Route: 048
     Dates: start: 19980213
  19. SORAFENIB (RAF KINASE INHIBITOR) [Suspect]
     Indication: RENAL CELL CARCINOMA
     Route: 048
     Dates: start: 20090521, end: 20090521
  20. DILTIAZEM [Concomitant]
     Indication: HYPERTENSION
     Route: 048
     Dates: start: 20090414
  21. COUMADIN [Concomitant]
     Indication: ATRIAL FIBRILLATION
     Route: 048
     Dates: start: 20090414, end: 20090725
  22. POTASSIUM CHLORIDE [Concomitant]
     Indication: HYPOKALAEMIA
     Route: 048
     Dates: start: 20090625
  23. SENOKOT [Concomitant]
     Indication: CONSTIPATION
     Route: 048
     Dates: start: 20090804
  24. AMBIEN [Concomitant]
     Indication: INSOMNIA
     Route: 048
     Dates: start: 20090804
  25. NITROGLYCERIN [Concomitant]
     Indication: ANGINA PECTORIS
     Route: 060
     Dates: start: 20080114
  26. CALCIUM CARBONATE [Concomitant]
     Indication: FRACTURE
     Route: 048
     Dates: start: 20010122

REACTIONS (6)
  - BACK PAIN [None]
  - NAUSEA [None]
  - DIARRHOEA [None]
  - DECREASED APPETITE [None]
  - FAECAL INCONTINENCE [None]
  - ABDOMINAL PAIN [None]
